FAERS Safety Report 4322550-9 (Version None)
Quarter: 2004Q1

REPORT INFORMATION
  Report Type: 
  Country: None (occurrence: None)
  Receive Date: 20040319
  Receipt Date: 20040308
  Transmission Date: 20041129
  Serious: Yes (Death)
  Sender: FDA-Public Use
  Company Number: 2004-DE-01148GD(0)

PATIENT
  Age: 72 Year
  Sex: Female

DRUGS (2)
  1. CYCLOPHOSPHAMIDE [Suspect]
     Indication: RETROPERITONEAL FIBROSIS
     Dosage: SEE TEXT
  2. PREDNISONE [Suspect]
     Indication: RETROPERITONEAL FIBROSIS
     Dosage: 1 - 1.5 MG/KG/DAY FOR 3 WEEKS, THEN TAPERED UNTIL DISCONTINUATION WITHIN 6 MONTHS , PO
     Route: 048

REACTIONS (5)
  - CALCULUS URETERIC [None]
  - EOSINOPHIL COUNT INCREASED [None]
  - PNEUMONIA [None]
  - RED BLOOD CELL SEDIMENTATION RATE INCREASED [None]
  - URINARY TRACT OBSTRUCTION [None]
